FAERS Safety Report 5835399-2 (Version None)
Quarter: 2008Q3

REPORT INFORMATION
  Report Type: 
  Country: None (occurrence: None)
  Receive Date: 20080804
  Receipt Date: 20080728
  Transmission Date: 20090109
  Serious: Yes (Other)
  Sender: FDA-Public Use
  Company Number: OSCN-PR-080IL-0041

PATIENT
  Age: 56 Year
  Sex: Male

DRUGS (2)
  1. OMNISCAN [Suspect]
     Indication: DRUG USE FOR UNKNOWN INDICATION
     Dosage: 0.12 MMOL/KG, SINGLE DOSE, I.V.
     Route: 042
  2. EPOGEN [Concomitant]

REACTIONS (7)
  - ANTINUCLEAR ANTIBODY POSITIVE [None]
  - BLOOD CALCIUM DECREASED [None]
  - HAEMODIALYSIS [None]
  - HAEMOGLOBIN DECREASED [None]
  - NEPHROGENIC SYSTEMIC FIBROSIS [None]
  - RENAL FAILURE ACUTE [None]
  - RENAL FAILURE CHRONIC [None]
